FAERS Safety Report 9516044 (Version 1)
Quarter: 2013Q3

REPORT INFORMATION
  Report Type: Spontaneous
  Country: US (occurrence: US)
  Receive Date: 20130911
  Receipt Date: 20130911
  Transmission Date: 20140515
  Serious: Yes (Other)
  Sender: FDA-Public Use
  Company Number: US-ENDO PHARMACEUTICALS INC.-PERC20130115

PATIENT
  Age: 68 Year
  Sex: Male

DRUGS (2)
  1. PERCOCET 10MG/325MG [Suspect]
     Indication: PAIN
     Dosage: 10/325MG
     Route: 048
     Dates: start: 2004
  2. PERCOCET 10MG/325MG [Suspect]
     Dosage: 10/325MG
     Route: 048
     Dates: start: 2013

REACTIONS (3)
  - Lower limb fracture [Recovered/Resolved]
  - Fall [Recovered/Resolved]
  - Drug tolerance [Not Recovered/Not Resolved]
